FAERS Safety Report 25098242 (Version 2)
Quarter: 2025Q2

REPORT INFORMATION
  Report Type: Spontaneous
  Country: US (occurrence: US)
  Receive Date: 20250320
  Receipt Date: 20250511
  Transmission Date: 20250717
  Serious: Yes (Hospitalization)
  Sender: SANOFI AVENTIS
  Company Number: US-SA-2025SA079238

PATIENT
  Age: 5 Year
  Sex: Male

DRUGS (3)
  1. ALPROLIX [Suspect]
     Active Substance: EFTRENONACOG ALFA
     Indication: Factor IX deficiency
     Dosage: INFUSE 2850 UNITS (2565-3135) SLOW IV PUSH 30-60 MINUTES PRE-OPERATIVELY. POST-OP INFUSE 2850 UNITS(
     Route: 042
     Dates: start: 202306
  2. ALPROLIX [Suspect]
     Active Substance: EFTRENONACOG ALFA
     Indication: Factor IX deficiency
     Dosage: INFUSE 2850 UNITS (2565-3135) SLOW IV PUSH 30-60 MINUTES PRE-OPERATIVELY. POST-OP INFUSE 2850 UNITS(
     Route: 042
     Dates: start: 202306
  3. AMINOCAPROIC ACID [Concomitant]
     Active Substance: AMINOCAPROIC ACID

REACTIONS (3)
  - Tooth extraction [Unknown]
  - Haemorrhage [Unknown]
  - Pain [Unknown]

NARRATIVE: CASE EVENT DATE: 20250424
